FAERS Safety Report 11199505 (Version 1)
Quarter: 2015Q2

REPORT INFORMATION
  Report Type: Spontaneous
  Country: IN (occurrence: IN)
  Receive Date: 20150618
  Receipt Date: 20150618
  Transmission Date: 20150821
  Serious: Yes (Other)
  Sender: FDA-Public Use
  Company Number: IN-MYLANLABS-2015M1019034

PATIENT

DRUGS (2)
  1. PHENYTOIN. [Suspect]
     Active Substance: PHENYTOIN
     Indication: PRODUCT USED FOR UNKNOWN INDICATION
     Dosage: 20.8 MG/KG/DAY ADMINISTERED INADVERTENTLY
     Route: 065
  2. PHENYTOIN. [Suspect]
     Active Substance: PHENYTOIN
     Dosage: USUAL DOSE 7.5ML OF 30MG/5ML TWICE DAILY (5MG/KG/DAY)

REACTIONS (3)
  - Drug dispensing error [Unknown]
  - Fall [Unknown]
  - Dizziness [Unknown]
